FAERS Safety Report 14947737 (Version 4)
Quarter: 2020Q1

REPORT INFORMATION
  Report Type: Report from Study
  Country: GT (occurrence: GT)
  Receive Date: 20180529
  Receipt Date: 20200317
  Transmission Date: 20200409
  Serious: Yes (Hospitalization, Other)
  Sender: FDA-Public Use
  Company Number: GT-SA-2018SA138893

PATIENT
  Age: 16 Year
  Sex: Female

DRUGS (1)
  1. AGALSIDASE BETA [Suspect]
     Active Substance: AGALSIDASE BETA
     Indication: FABRY^S DISEASE
     Dosage: 1 MG/KG, QOW (EVERY 14 DAYS)
     Route: 041
     Dates: start: 20151201

REACTIONS (13)
  - Dehydration [Recovered/Resolved]
  - Influenza [Recovered/Resolved]
  - Malaise [Recovered/Resolved]
  - Mumps [Recovering/Resolving]
  - Haematochezia [Recovered/Resolved]
  - Appendicitis [Recovering/Resolving]
  - Abdominal pain lower [Recovering/Resolving]
  - Pain [Recovered/Resolved]
  - Swelling [Recovering/Resolving]
  - H1N1 influenza [Recovered/Resolved]
  - Pyrexia [Recovered/Resolved]
  - Diarrhoea [Recovered/Resolved]
  - Pyrexia [Recovered/Resolved]

NARRATIVE: CASE EVENT DATE: 20180511
